FAERS Safety Report 12479099 (Version 2)
Quarter: 2016Q3

REPORT INFORMATION
  Report Type: Spontaneous
  Country: US (occurrence: US)
  Receive Date: 20160620
  Receipt Date: 20160919
  Transmission Date: 20161109
  Serious: No
  Sender: FDA-Public Use
  Company Number: US-009507513-1606USA007271

PATIENT

DRUGS (1)
  1. BELSOMRA [Suspect]
     Active Substance: SUVOREXANT
     Dosage: UNK, AT THE APPROPRIATE TIME BEFORE BED
     Route: 048

REACTIONS (2)
  - Initial insomnia [Unknown]
  - Fatigue [Unknown]
